FAERS Safety Report 5206986-X (Version None)
Quarter: 2007Q1

REPORT INFORMATION
  Report Type: 
  Country: None (occurrence: None)
  Receive Date: 20070112
  Receipt Date: 20070105
  Transmission Date: 20070707
  Serious: Yes (Hospitalization)
  Sender: FDA-Public Use
  Company Number: PHBS2007NO00647

PATIENT
  Age: 62 Year
  Sex: Male

DRUGS (4)
  1. ALBYL-E [Suspect]
     Indication: NEPHROLITHIASIS
     Dosage: 75 MG/DAY
     Route: 048
     Dates: start: 20061219
  2. CONFORTID [Suspect]
     Indication: NEPHROLITHIASIS
     Dosage: 100 MG/DAY
     Dates: start: 20061219
  3. MORPHINE [Suspect]
     Indication: NEPHROLITHIASIS
     Dates: start: 20061219
  4. VOLTAREN [Suspect]
     Indication: NEPHROLITHIASIS
     Dosage: 100 MG/DAY
     Dates: start: 20061219, end: 20061219

REACTIONS (4)
  - ABDOMINAL PAIN UPPER [None]
  - GASTRITIS [None]
  - GASTRODUODENITIS [None]
  - VOMITING [None]
